FAERS Safety Report 8702417 (Version 2)
Quarter: 2012Q4

REPORT INFORMATION
  Report Type: 
  Country: US (occurrence: US)
  Receive Date: 20120803
  Receipt Date: 20121102
  Transmission Date: 20130627
  Serious: No
  Sender: FDA-Public Use
  Company Number: US-GLAXOSMITHKLINE-A0981847A

PATIENT
  Sex: Male

DRUGS (1)
  1. HORIZANT [Suspect]
     Indication: PRODUCT USED FOR UNKNOWN INDICATION
     Dosage: 600MG Unknown
     Route: 048

REACTIONS (5)
  - Dizziness [Unknown]
  - Somnolence [Unknown]
  - Mobility decreased [Unknown]
  - Dysstasia [Unknown]
  - Product quality issue [Unknown]
